FAERS Safety Report 24097560 (Version 1)
Quarter: 2024Q3

REPORT INFORMATION
  Report Type: Spontaneous
  Country: FR (occurrence: FR)
  Receive Date: 20240716
  Receipt Date: 20240716
  Transmission Date: 20241017
  Serious: Yes (Other)
  Sender: FRESENIUS KABI
  Company Number: None

PATIENT
  Age: 69 Year
  Sex: Male
  Weight: 63 kg

DRUGS (3)
  1. IDACIO [Suspect]
     Active Substance: ADALIMUMAB-AACF
     Indication: Ankylosing spondylitis
     Route: 058
  2. METHOTREXATE [Suspect]
     Active Substance: METHOTREXATE
     Indication: Ankylosing spondylitis
     Route: 058
     Dates: start: 20240415
  3. FOLIC ACID [Suspect]
     Active Substance: FOLIC ACID
     Indication: Vitamin supplementation
     Route: 048
     Dates: start: 20240415

REACTIONS (2)
  - Gynaecomastia [Not Recovered/Not Resolved]
  - Blood testosterone free decreased [Not Recovered/Not Resolved]

NARRATIVE: CASE EVENT DATE: 20240501
